FAERS Safety Report 9860903 (Version 1)
Quarter: 2014Q1

REPORT INFORMATION
  Report Type: Spontaneous
  Country: NZ (occurrence: NZ)
  Receive Date: 20140202
  Receipt Date: 20140202
  Transmission Date: 20141002
  Serious: No
  Sender: FDA-Public Use
  Company Number: NZ-ALLERGAN-1302046US

PATIENT
  Sex: Female

DRUGS (3)
  1. BOTOX [Suspect]
     Indication: SKIN WRINKLING
     Dosage: 12 UNITS, SINGLE
     Route: 030
     Dates: start: 20130130, end: 20130130
  2. BOTOX [Suspect]
     Indication: SKIN WRINKLING
     Dosage: 2 UNITS, SINGLE
     Route: 030
     Dates: start: 20130130, end: 20130130
  3. BOTOX [Suspect]
     Indication: SKIN WRINKLING
     Dosage: 4 UNITS, SINGLE
     Route: 030
     Dates: start: 20130130, end: 20130130

REACTIONS (3)
  - Skin wrinkling [Recovering/Resolving]
  - Lymphostasis [Recovering/Resolving]
  - Wrong technique in drug usage process [Unknown]
